FAERS Safety Report 5493408-7 (Version None)
Quarter: 2007Q4

REPORT INFORMATION
  Report Type: 
  Country: None (occurrence: None)
  Receive Date: 20071023
  Receipt Date: 20071010
  Transmission Date: 20080405
  Serious: Yes (Hospitalization)
  Sender: FDA-Public Use
  Company Number: CH-ELI_LILLY_AND_COMPANY-CH200709005377

PATIENT
  Age: 75 Year
  Sex: Female

DRUGS (7)
  1. FLUCTINE [Suspect]
     Indication: DEPRESSION
     Dosage: 20 MG, DAILY (1/D)
     Route: 048
     Dates: start: 20020101
  2. CALCORT [Concomitant]
     Dosage: 6 MG, DAILY (1/D)
     Route: 048
     Dates: start: 20040101
  3. AZAREK [Interacting]
     Indication: PEMPHIGUS
     Dosage: 25 MG, DAILY (1/D)
     Route: 048
     Dates: start: 19950101
  4. AZAREK [Interacting]
     Dosage: 50 MG, DAILY (1/D)
     Route: 048
     Dates: start: 20050702
  5. AZAREK [Interacting]
     Dates: start: 20070101
  6. EFFEXOR [Concomitant]
     Indication: DEPRESSION
     Dosage: 75 MG, DAILY (1/D)
     Route: 048
     Dates: start: 20070225
  7. EFFEXOR [Concomitant]
     Dosage: 150 MG, DAILY (1/D)
     Route: 048
     Dates: start: 20070326

REACTIONS (2)
  - DEPRESSION [None]
  - DRUG INTERACTION [None]
